FAERS Safety Report 12811420 (Version 4)
Quarter: 2020Q4

REPORT INFORMATION
  Report Type: Spontaneous
  Country: US (occurrence: US)
  Receive Date: 20161005
  Receipt Date: 20201207
  Transmission Date: 20210113
  Serious: No
  Sender: FDA-Public Use
  Company Number: US-PFIZER INC-2016465047

PATIENT
  Age: 63 Year
  Sex: Female

DRUGS (1)
  1. LYRICA [Suspect]
     Active Substance: PREGABALIN
     Indication: FIBROMYALGIA
     Dosage: 150 MG, 2X/DAY (TAKE 1 CAPSULE BY MOUTH 2 (TWO) TIMES A DAY)
     Route: 048

REACTIONS (3)
  - Malaise [Unknown]
  - Illness [Unknown]
  - Throat irritation [Unknown]
